FAERS Safety Report 6139733-8 (Version None)
Quarter: 2009Q2

REPORT INFORMATION
  Report Type: 
  Country: None (occurrence: None)
  Receive Date: 20090401
  Receipt Date: 20090326
  Transmission Date: 20091009
  Serious: Yes (Hospitalization)
  Sender: FDA-Public Use
  Company Number: AU-AVENTIS-200911228EU

PATIENT
  Age: 67 Year
  Sex: Female

DRUGS (2)
  1. CLEXANE [Suspect]
     Dates: start: 20090310
  2. HERCEPTIN [Concomitant]

REACTIONS (2)
  - HEADACHE [None]
  - VOMITING [None]
